FAERS Safety Report 24915346 (Version 1)
Quarter: 2025Q1

REPORT INFORMATION
  Report Type: Spontaneous
  Country: US (occurrence: US)
  Receive Date: 20250203
  Receipt Date: 20250203
  Transmission Date: 20250409
  Serious: No
  Sender: AMGEN
  Company Number: US-AMGEN-USASP2025018806

PATIENT
  Age: 36 Year
  Sex: Male

DRUGS (5)
  1. OTEZLA [Suspect]
     Active Substance: APREMILAST
     Indication: Psoriasis
     Dosage: 30 MILLIGRAM, BID (TAKE 1 TABLET BY MOUTH EVERY MORNING AND EVERY EVENING)
     Route: 048
     Dates: start: 20241206
  2. CLOBETASOL [Concomitant]
     Active Substance: CLOBETASOL
  3. DESONIDE [Concomitant]
     Active Substance: DESONIDE
  4. TACROLIMUS [Concomitant]
     Active Substance: TACROLIMUS
  5. IBUPROFEN [Concomitant]
     Active Substance: IBUPROFEN

REACTIONS (3)
  - Therapy non-responder [Recovered/Resolved]
  - Product dose omission issue [Recovered/Resolved]
  - Adverse reaction [Recovered/Resolved]
